FAERS Safety Report 4382247-6 (Version None)
Quarter: 2004Q2

REPORT INFORMATION
  Report Type: 
  Country: None (occurrence: None)
  Receive Date: 20040616
  Receipt Date: 20040604
  Transmission Date: 20050107
  Serious: Yes (Life-Threatening)
  Sender: FDA-Public Use
  Company Number: D01200402025

PATIENT
  Age: 49 Year
  Sex: Male

DRUGS (8)
  1. ONE OF (FONDAPARINUX) - SOLUTION - UNIT DOSE: UNKNOWN [Suspect]
     Indication: MYOCARDIAL INFARCTION
     Dosage: ONE OF 2.5 MG QD' SUBCUTANEOUS
     Route: 058
     Dates: start: 20030919, end: 20030926
  2. ASPIRIN [Concomitant]
  3. CLOPIDOGREL BISULFATE [Concomitant]
  4. PRAVASTATIN [Concomitant]
  5. ENALAPRIL MALEATE [Concomitant]
  6. NITRATES [Concomitant]
  7. SIMVASTATIN [Concomitant]
  8. DILTIAZEM [Concomitant]

REACTIONS (6)
  - ANGINA PECTORIS [None]
  - BLOOD CREATINE PHOSPHOKINASE INCREASED [None]
  - CATHETER RELATED COMPLICATION [None]
  - CORONARY ARTERY OCCLUSION [None]
  - ELECTROCARDIOGRAM ST SEGMENT ELEVATION [None]
  - THROMBOSIS [None]
